FAERS Safety Report 13527628 (Version 1)
Quarter: 2017Q2

REPORT INFORMATION
  Report Type: Spontaneous
  Country: IN (occurrence: IN)
  Receive Date: 20170509
  Receipt Date: 20170509
  Transmission Date: 20170830
  Serious: Yes (Life-Threatening, Hospitalization, Other)
  Sender: FDA-Public Use
  Company Number: IN-MYLANLABS-2017M1027340

PATIENT

DRUGS (3)
  1. TACROLIMUS. [Suspect]
     Active Substance: TACROLIMUS
     Indication: IMMUNOSUPPRESSANT DRUG THERAPY
     Route: 065
  2. PREDNISOLONE. [Suspect]
     Active Substance: PREDNISOLONE
     Indication: IMMUNOSUPPRESSANT DRUG THERAPY
     Route: 065
  3. AZATHIOPRINE. [Suspect]
     Active Substance: AZATHIOPRINE
     Indication: IMMUNOSUPPRESSANT DRUG THERAPY
     Route: 065

REACTIONS (12)
  - VIth nerve paralysis [Unknown]
  - Generalised tonic-clonic seizure [Unknown]
  - Infective aneurysm [Unknown]
  - Cellulitis orbital [Unknown]
  - Sinusitis [Unknown]
  - Cavernous sinus thrombosis [Unknown]
  - Mucormycosis [Unknown]
  - Cerebral infarction [Unknown]
  - Carotid artery aneurysm [Unknown]
  - Meningitis cryptococcal [Unknown]
  - Subarachnoid haemorrhage [Unknown]
  - Vasculitis [Unknown]
